FAERS Safety Report 7982134-8 (Version None)
Quarter: 2011Q4

REPORT INFORMATION
  Report Type: 
  Country: None (occurrence: None)
  Receive Date: 20111215
  Receipt Date: 20111213
  Transmission Date: 20120403
  Serious: Yes (Death, Hospitalization)
  Sender: FDA-Public Use
  Company Number: JP-BAYER-201015335BYL

PATIENT
  Age: 66 Year
  Sex: Male
  Weight: 57 kg

DRUGS (10)
  1. KALIMATE [Concomitant]
     Dosage: DAILY DOSE 15 G
     Route: 048
     Dates: end: 20101012
  2. VOLTAREN [Concomitant]
     Indication: PYREXIA
     Dosage: DAILY DOSE 25 MG
     Route: 048
     Dates: end: 20101013
  3. KERATINAMIN [Concomitant]
     Indication: PROPHYLAXIS
     Dosage: UNK
     Route: 061
     Dates: end: 20101013
  4. NEXAVAR [Suspect]
     Indication: HEPATIC NEOPLASM MALIGNANT
     Dosage: 400 MG, QD
     Route: 048
     Dates: start: 20100929, end: 20101001
  5. PURSENNID [Concomitant]
     Dosage: DAILY DOSE 24 MG
     Route: 048
     Dates: end: 20101013
  6. NEXAVAR [Suspect]
     Dosage: 400 MG, QOD
     Route: 048
     Dates: start: 20101002, end: 20101012
  7. MUCOSTA [Concomitant]
     Dosage: DAILY DOSE 200 MG
     Route: 048
     Dates: end: 20101013
  8. ACETAMINOPHEN [Concomitant]
     Indication: PYREXIA
     Dosage: DAILY DOSE 500 MG
     Route: 048
     Dates: end: 20101013
  9. URSO 250 [Concomitant]
     Dosage: DAILY DOSE 300 MG
     Route: 048
     Dates: end: 20101013
  10. OMEPRAZOLE [Concomitant]
     Dosage: DAILY DOSE 20 MG
     Route: 048
     Dates: end: 20101013

REACTIONS (6)
  - PYREXIA [None]
  - ASCITES [None]
  - HYPERAMMONAEMIA [None]
  - HEPATIC FUNCTION ABNORMAL [None]
  - HEPATIC NEOPLASM MALIGNANT [None]
  - HEPATIC FAILURE [None]
